FAERS Safety Report 10749664 (Version 1)
Quarter: 2015Q1

REPORT INFORMATION
  Report Type: Spontaneous
  Country: JP (occurrence: JP)
  Receive Date: 20150129
  Receipt Date: 20150129
  Transmission Date: 20150721
  Serious: Yes (Other)
  Sender: FDA-Public Use
  Company Number: JP-DSJP-DSJ-2015-101740

PATIENT
  Age: 85 Year
  Sex: Female
  Weight: 56 kg

DRUGS (1)
  1. LIXIANA TABLETS [Suspect]
     Active Substance: EDOXABAN TOSILATE MONOHYDRATE
     Indication: HIP ARTHROPLASTY
     Dosage: UNK
     Route: 065
     Dates: start: 20140110, end: 20140122

REACTIONS (1)
  - Post procedural persistent drain fluid [Recovering/Resolving]

NARRATIVE: CASE EVENT DATE: 20140122
